FAERS Safety Report 10558898 (Version 2)
Quarter: 2014Q4

REPORT INFORMATION
  Report Type: Report from Study
  Country: AU (occurrence: AU)
  Receive Date: 20141101
  Receipt Date: 20141126
  Transmission Date: 20150529
  Serious: Yes (Disabling, Other)
  Sender: FDA-Public Use
  Company Number: PHHY2014AU139718

PATIENT
  Age: 32 Year
  Sex: Male

DRUGS (2)
  1. CLOZARIL [Suspect]
     Active Substance: CLOZAPINE
     Indication: SCHIZOPHRENIA
     Dosage: 200 (UNIT UNSPECIFIED)
     Route: 048
     Dates: start: 20010828, end: 201409
  2. AMPHETAMINE [Suspect]
     Active Substance: AMPHETAMINE
     Indication: DRUG DIVERSION
     Dosage: UNK
     Route: 048
     Dates: start: 20141019, end: 20141019

REACTIONS (2)
  - Aggression [Recovering/Resolving]
  - Schizophrenia [Unknown]

NARRATIVE: CASE EVENT DATE: 20141019
